FAERS Safety Report 5504190-9 (Version None)
Quarter: 2007Q4

REPORT INFORMATION
  Report Type: 
  Country: None (occurrence: None)
  Receive Date: 20071101
  Receipt Date: 20071029
  Transmission Date: 20080405
  Serious: Yes (Hospitalization)
  Sender: FDA-Public Use
  Company Number: B0488741A

PATIENT
  Age: 49 Year
  Sex: Male

DRUGS (9)
  1. TELZIR [Suspect]
     Indication: HIV INFECTION
     Dosage: 700MG PER DAY
     Route: 048
     Dates: start: 20070814, end: 20070829
  2. DEPAKENE [Suspect]
     Indication: CEREBRAL TOXOPLASMOSIS
     Dosage: 500MG THREE TIMES PER DAY
     Route: 048
     Dates: start: 20070712, end: 20070831
  3. NORVIR [Concomitant]
     Indication: HIV INFECTION
     Dosage: 100MG PER DAY
     Route: 048
     Dates: start: 20070814, end: 20070829
  4. INEXIUM [Concomitant]
     Indication: GASTRITIS
     Dosage: 40MG PER DAY
     Route: 048
     Dates: start: 20070712, end: 20070829
  5. DALACINE [Concomitant]
     Indication: CEREBRAL TOXOPLASMOSIS
     Dosage: 300MG EIGHT TIMES PER DAY
     Route: 048
     Dates: start: 20070712
  6. PYRIMETHAMINE TAB [Concomitant]
     Indication: CEREBRAL TOXOPLASMOSIS
     Route: 065
     Dates: start: 20070712
  7. LEDERFOLINE [Concomitant]
     Indication: CEREBRAL TOXOPLASMOSIS
     Route: 065
     Dates: start: 20070712
  8. TRUVADA [Concomitant]
     Indication: HIV INFECTION
     Route: 065
     Dates: start: 20070814
  9. SOLUPRED [Concomitant]
     Route: 065
     Dates: end: 20070918

REACTIONS (4)
  - IMMUNE SYSTEM DISORDER [None]
  - RASH ERYTHEMATOUS [None]
  - RASH MACULO-PAPULAR [None]
  - TOXIC SKIN ERUPTION [None]
